FAERS Safety Report 10460249 (Version 2)
Quarter: 2014Q3

REPORT INFORMATION
  Report Type: Spontaneous
  Country: JP (occurrence: JP)
  Receive Date: 20140917
  Receipt Date: 20140924
  Transmission Date: 20150326
  Serious: Yes (Hospitalization)
  Sender: FDA-Public Use
  Company Number: JP-009507513-1409JPN007685

PATIENT
  Age: 62 Year
  Sex: Female

DRUGS (5)
  1. INTRON A [Interacting]
     Active Substance: INTERFERON ALFA-2B
     Dosage: DAILY ADMINISTRATION OF 6 MEGA UNITS
     Route: 030
     Dates: start: 200204, end: 2002
  2. REBETOL [Interacting]
     Active Substance: RIBAVIRIN
     Dosage: 600 MG/DAY
     Route: 048
     Dates: start: 201001
  3. INTRON A [Interacting]
     Active Substance: INTERFERON ALFA-2B
     Dosage: 6 MILLION IU, TIW
     Route: 030
     Dates: start: 2002, end: 2002
  4. INTRON A [Suspect]
     Active Substance: INTERFERON ALFA-2B
     Indication: CHRONIC HEPATITIS C
     Dosage: UNK
     Dates: start: 1995, end: 1995
  5. REBETOL [Interacting]
     Active Substance: RIBAVIRIN
     Indication: CHRONIC HEPATITIS C
     Dosage: 600 MG/DAY; DIVIDED DOSE FREQUENCY UNKNOWN
     Route: 048
     Dates: start: 200204

REACTIONS (1)
  - Arrhythmia [Recovered/Resolved]

NARRATIVE: CASE EVENT DATE: 2002
